FAERS Safety Report 4341663-9 (Version None)
Quarter: 2004Q2

REPORT INFORMATION
  Report Type: 
  Country: None (occurrence: None)
  Receive Date: 20040415
  Receipt Date: 20040322
  Transmission Date: 20050107
  Serious: No
  Sender: FDA-Public Use
  Company Number: EWC040338684

PATIENT
  Age: 45 Year
  Sex: Female

DRUGS (2)
  1. OLANZAPINE [Suspect]
     Indication: SCHIZOPHRENIA
     Dosage: 5 MG/1 DAY
     Dates: start: 20040101, end: 20040320
  2. CLOPIXOL (ZUCLOPENTHIXOL DECANOATE) [Concomitant]

REACTIONS (1)
  - VAGINAL HAEMORRHAGE [None]
